FAERS Safety Report 8593477 (Version 2)
Quarter: 2012Q4

REPORT INFORMATION
  Report Type: 
  Country: US (occurrence: US)
  Receive Date: 20120604
  Receipt Date: 20121029
  Transmission Date: 20130627
  Serious: Yes (Hospitalization)
  Sender: FDA-Public Use
  Company Number: US-BAYER-2012-053222

PATIENT
  Age: 20 Year
  Sex: Female
  Weight: 58.96 kg

DRUGS (17)
  1. YAZ [Suspect]
     Indication: CONTRACEPTION
     Dosage: UNK
     Dates: start: 20070605, end: 20070731
  2. YAZ [Suspect]
     Indication: ACNE
     Dosage: UNK
     Dates: start: 20080821, end: 20090605
  3. YAZ [Suspect]
     Indication: PREMENSTRUAL SYNDROME
  4. YASMIN [Suspect]
  5. OCELLA [Suspect]
     Indication: MENSTRUAL DISORDER
     Dosage: UNK
     Dates: start: 200905, end: 20090605
  6. OCELLA [Suspect]
     Indication: CONTRACEPTION
     Dosage: UNK
     Dates: start: 20080821, end: 20090605
  7. OCELLA [Suspect]
     Indication: ACNE
  8. OCELLA [Suspect]
     Indication: PREMENSTRUAL SYNDROME
  9. ADVIL [Concomitant]
  10. IBUPROFEN [Concomitant]
     Dosage: UNK
     Dates: start: 2002, end: 2009
  11. ALEVE [Concomitant]
     Dosage: UNK
     Dates: start: 2002, end: 2009
  12. CHOLINE MAGNESIUM TRISALICYLATE [Concomitant]
     Dosage: UNK
     Dates: start: 2009
  13. FLEXERIL [Concomitant]
     Indication: PAIN MANAGEMENT
     Dosage: UNK
     Dates: start: 200906
  14. VICODIN [Concomitant]
     Indication: PAIN MANAGEMENT
     Dosage: UNK
     Dates: start: 200906
  15. B12 [Concomitant]
  16. INDOCARBANOL [Concomitant]
  17. HYDROCODONE [Concomitant]

REACTIONS (6)
  - Deep vein thrombosis [None]
  - Mental disorder [None]
  - Injury [None]
  - Pain [None]
  - Emotional distress [None]
  - Pelvic venous thrombosis [None]
